FAERS Safety Report 5287440-6 (Version None)
Quarter: 2007Q1

REPORT INFORMATION
  Report Type: 
  Country: None (occurrence: None)
  Receive Date: 20070116
  Receipt Date: 20060925
  Transmission Date: 20070707
  Serious: No
  Sender: FDA-Public Use
  Company Number: 2006SP003408

PATIENT
  Age: 75 Year
  Sex: Female
  Weight: 81.1939 kg

DRUGS (9)
  1. LUNESTA [Suspect]
     Indication: INSOMNIA
     Dosage: 2 MG HS ORAL
     Route: 048
     Dates: start: 20060901
  2. ATORVASTATIN CALCIUM [Concomitant]
  3. CALCIUM [Concomitant]
  4. FOSAMAX [Concomitant]
  5. HYZAAR [Concomitant]
  6. SYNTHROID [Concomitant]
  7. OMEPRAZOLE [Concomitant]
  8. ACETYLSALICYLIC ACID SRT [Concomitant]
  9. KLONOPIN [Concomitant]

REACTIONS (2)
  - DRUG INEFFECTIVE [None]
  - INSOMNIA [None]
